FAERS Safety Report 9565801 (Version 1)
Quarter: 2013Q3

REPORT INFORMATION
  Report Type: Spontaneous
  Country: NL (occurrence: NL)
  Receive Date: 20130930
  Receipt Date: 20130930
  Transmission Date: 20140515
  Serious: Yes (Other)
  Sender: FDA-Public Use
  Company Number: NL-GLAXOSMITHKLINE-B0925987A

PATIENT
  Age: 42 Year
  Sex: Male

DRUGS (1)
  1. AVAMYS [Suspect]
     Indication: EAR DISORDER
     Route: 045
     Dates: start: 20130812, end: 20130826

REACTIONS (1)
  - Hypoacusis [Recovering/Resolving]
